FAERS Safety Report 5580182-9 (Version None)
Quarter: 2007Q4

REPORT INFORMATION
  Report Type: 
  Country: None (occurrence: None)
  Receive Date: 20071227
  Receipt Date: 20071227
  Transmission Date: 20080405
  Serious: No
  Sender: FDA-Public Use
  Company Number: None

PATIENT
  Age: 53 Year
  Sex: Female
  Weight: 68.0396 kg

DRUGS (1)
  1. CRESTOR [Suspect]
     Indication: BLOOD CHOLESTEROL INCREASED
     Dosage: 1 TABLET DAILY PO
     Route: 048
     Dates: start: 20071129, end: 20071223

REACTIONS (10)
  - ALCOHOLISM [None]
  - CHEST PAIN [None]
  - CONSTIPATION [None]
  - DEPRESSION [None]
  - DYSPEPSIA [None]
  - EYE DISORDER [None]
  - MENTAL DISORDER [None]
  - PAIN [None]
  - PANIC REACTION [None]
  - SUICIDAL IDEATION [None]
